FAERS Safety Report 4607348-6 (Version None)
Quarter: 2005Q1

REPORT INFORMATION
  Report Type: 
  Country: None (occurrence: None)
  Receive Date: 20050310
  Receipt Date: 20050228
  Transmission Date: 20050727
  Serious: Yes (Disabling)
  Sender: FDA-Public Use
  Company Number: 200501661

PATIENT
  Age: 88 Year
  Sex: Female

DRUGS (3)
  1. GATIFLOXACIN [Suspect]
     Indication: PROPHYLAXIS
     Dates: start: 20041202, end: 20050214
  2. TIMOPTIC [Concomitant]
  3. KARY UNI OPHTHALMIC SUSPENSION (PIRENOXINE) [Concomitant]

REACTIONS (2)
  - DACRYOCYSTITIS INFECTIVE [None]
  - EYE DISCHARGE [None]
